FAERS Safety Report 12264852 (Version 1)
Quarter: 2016Q2

REPORT INFORMATION
  Report Type: Spontaneous
  Country: US (occurrence: US)
  Receive Date: 20160413
  Receipt Date: 20160413
  Transmission Date: 20160815
  Serious: No
  Sender: FDA-Public Use
  Company Number: US-JNJFOC-20160309419

PATIENT
  Age: 65 Year
  Sex: Female
  Weight: 53.98 kg

DRUGS (2)
  1. TYLENOL 8 HR ARTHRITIS PAIN [Suspect]
     Active Substance: ACETAMINOPHEN
     Indication: PAIN IN EXTREMITY
     Dosage: WHEN NEEDED-SOMETIMES MORE THAN ONE IN 24 HOURS
     Route: 048
  2. TYLENOL 8 HR ARTHRITIS PAIN [Suspect]
     Active Substance: ACETAMINOPHEN
     Indication: ARTHRITIS
     Dosage: WHEN NEEDED-SOMETIMES MORE THAN ONE IN 24 HOURS
     Route: 048

REACTIONS (1)
  - Inappropriate schedule of drug administration [Unknown]
